FAERS Safety Report 5832845-5 (Version None)
Quarter: 2008Q3

REPORT INFORMATION
  Report Type: 
  Country: None (occurrence: None)
  Receive Date: 20080804
  Receipt Date: 20080723
  Transmission Date: 20090109
  Serious: Yes (Hospitalization)
  Sender: FDA-Public Use
  Company Number: JP-PFIZER INC-2008062199

PATIENT
  Age: 75 Year
  Sex: Male

DRUGS (7)
  1. AZULFIDINE EN-TABS [Suspect]
     Indication: RHEUMATOID ARTHRITIS
     Dosage: DAILY DOSE:500MG
     Route: 048
     Dates: start: 20080305, end: 20080501
  2. LOXONIN [Suspect]
     Dosage: DAILY DOSE:180MG
     Route: 048
  3. MUCOSTA [Concomitant]
     Route: 048
  4. ADOFEED [Concomitant]
     Route: 062
  5. ADALAT [Concomitant]
     Route: 048
  6. NU LOTAN [Concomitant]
     Route: 048
  7. ALL OTHER THERAPEUTIC PRODUCTS [Concomitant]

REACTIONS (2)
  - GRANULOCYTOSIS [None]
  - THROMBOCYTOPENIA [None]
